FAERS Safety Report 6070891-X (Version None)
Quarter: 2009Q1

REPORT INFORMATION
  Report Type: 
  Country: None (occurrence: None)
  Receive Date: 20090209
  Receipt Date: 20081119
  Transmission Date: 20090719
  Serious: No
  Sender: FDA-Public Use
  Company Number: A0757619A

PATIENT
  Sex: Male

DRUGS (1)
  1. PAXIL [Suspect]
     Indication: DEPRESSION
     Route: 048
     Dates: start: 20050401

REACTIONS (3)
  - FEELING ABNORMAL [None]
  - INFLUENZA LIKE ILLNESS [None]
  - PREGNANCY OF PARTNER [None]
